FAERS Safety Report 9510922 (Version 1)
Quarter: 2013Q3

REPORT INFORMATION
  Report Type: Spontaneous
  Country: CN (occurrence: CN)
  Receive Date: 20130910
  Receipt Date: 20130910
  Transmission Date: 20140515
  Serious: Yes (Other)
  Sender: FDA-Public Use
  Company Number: CN-ROCHE-1271257

PATIENT
  Sex: Male
  Weight: 61 kg

DRUGS (1)
  1. CAPECITABINE [Suspect]
     Indication: LUNG NEOPLASM MALIGNANT
     Route: 048
     Dates: start: 20120528, end: 20120603

REACTIONS (1)
  - Eosinophil count decreased [Recovering/Resolving]
